FAERS Safety Report 17733887 (Version 2)
Quarter: 2020Q2

REPORT INFORMATION
  Report Type: Report from Study
  Country: GB (occurrence: GB)
  Receive Date: 20200501
  Receipt Date: 20200513
  Transmission Date: 20200714
  Serious: Yes (Other)
  Sender: FDA-Public Use
  Company Number: GB-MYLANLABS-2020M1042558

PATIENT

DRUGS (18)
  1. FOLINIC ACID [Suspect]
     Active Substance: LEUCOVORIN
     Indication: METASTASES TO LIVER
  2. FLUOROURACIL. [Suspect]
     Active Substance: FLUOROURACIL
     Indication: COLORECTAL CANCER
     Dosage: ON DAY1;SCHEDULED TO RECEIVE CHEMOTHERAPY WITH 14 DAY CYCLE FOR 12 WEEKS OF FLUOROURACIL OVER 5 MIN
     Route: 042
  3. PARACETAMOL [Suspect]
     Active Substance: ACETAMINOPHEN
     Indication: PRODUCT USED FOR UNKNOWN INDICATION
     Dosage: 1 GRAM ON DAY 1
     Route: 048
  4. FLUOROURACIL. [Suspect]
     Active Substance: FLUOROURACIL
     Indication: METASTASES TO LIVER
     Dosage: ON DAY1-3; SCHEDULED TO RECEIVE CHEMOTHERAPY WITH 14 DAY CYCLE FOR 12 WEEKS OF FLUOROURACIL OVER 46H
     Route: 042
  5. RANITIDINE. [Suspect]
     Active Substance: RANITIDINE
     Indication: PRODUCT USED FOR UNKNOWN INDICATION
     Dosage: 150 MILLIGRAM ON DAY 1
     Route: 048
  6. DEXAMETHASONE. [Suspect]
     Active Substance: DEXAMETHASONE
     Indication: METASTASES TO LIVER
  7. SALINE                             /00075401/ [Suspect]
     Active Substance: SODIUM CHLORIDE
     Indication: COLORECTAL CANCER
     Dosage: FLUSH LINE; ON DAY 1
     Route: 065
  8. FOLINIC ACID [Suspect]
     Active Substance: LEUCOVORIN
     Indication: COLORECTAL CANCER
     Dosage: ON DAY1; SCHEDULED TO RECEIVE CHEMOTHERAPY WITH 14 DAY CYCLE OF FOLINIC ACID FOR 2H
     Route: 042
  9. DEXAMETHASONE. [Suspect]
     Active Substance: DEXAMETHASONE
     Indication: COLORECTAL CANCER
     Dosage: ON DAY 1; SCHEDULED TO RECEIVE CHEMOTHERAPY WITH 14 DAY CYCLE FOR 12 WEEKS
     Route: 042
  10. SALINE                             /00075401/ [Suspect]
     Active Substance: SODIUM CHLORIDE
     Indication: METASTASES TO LIVER
     Dosage: FLUSH LINE; SCHEDULED FOR 2H
     Route: 065
  11. DEXTROSE. [Suspect]
     Active Substance: DEXTROSE
     Dosage: FLUSH LINE
     Route: 065
  12. HEPARINISED SALINE [Suspect]
     Active Substance: HEPARIN SODIUM
     Indication: PRODUCT USED FOR UNKNOWN INDICATION
     Dosage: 5 MILLILITER FLUSH LINE; ON DAY 3
     Route: 065
  13. CETUXIMAB. [Suspect]
     Active Substance: CETUXIMAB
     Indication: METASTASES TO LIVER
  14. CETUXIMAB. [Suspect]
     Active Substance: CETUXIMAB
     Indication: COLORECTAL CANCER
     Dosage: ON DAY 1; SCHEDULED TO RECEIVE CHEMOTHERAPY WITH 14 DAY CYCLE FOR 12 WEEKS OF CETUXIMAB FOR 2H
     Route: 042
  15. DEXTROSE. [Suspect]
     Active Substance: DEXTROSE
     Indication: PRODUCT USED FOR UNKNOWN INDICATION
     Dosage: FLUSH LINE; ON DAY 1
     Route: 065
  16. DEXTROSE. [Suspect]
     Active Substance: DEXTROSE
     Dosage: ON DAY 1; SCHEDULED TO RECEIVE CHEMOTHERAPY WITH 14 DAY CYCLE FOR 12 WEEKS OF GLUCOSE FOR 2H
     Route: 065
  17. GRANISETRON [Suspect]
     Active Substance: GRANISETRON
     Indication: PRODUCT USED FOR UNKNOWN INDICATION
     Dosage: 3 MILLIGRAM ON DAY1; SCHEDULED TO RECEIVE CHEMOTHERAPY WITH 14 DAY CYCLE
     Route: 040
  18. CHLORPHENAMINE [Suspect]
     Active Substance: CHLORPHENIRAMINE MALEATE
     Indication: PRODUCT USED FOR UNKNOWN INDICATION
     Dosage: 10 MILLIGRAM, ON DAY 1
     Route: 042

REACTIONS (1)
  - Device related infection [Unknown]
